FAERS Safety Report 9939928 (Version 1)
Quarter: 2014Q1

REPORT INFORMATION
  Report Type: Report from Study
  Country: US (occurrence: US)
  Receive Date: 20140303
  Receipt Date: 20140303
  Transmission Date: 20141002
  Serious: No
  Sender: FDA-Public Use
  Company Number: US-ABBVIE-13P-163-1036913-00

PATIENT
  Age: 52 Year
  Sex: Male
  Weight: 200.21 kg

DRUGS (5)
  1. HUMIRA [Suspect]
     Indication: PSORIASIS
     Dates: start: 2009, end: 2010
  2. HUMIRA [Suspect]
     Indication: PSORIATIC ARTHROPATHY
  3. HYZAAR [Concomitant]
     Indication: HYPERTENSION
  4. LEVEMIR [Concomitant]
     Indication: DIABETES MELLITUS
  5. METFORMIN [Concomitant]
     Indication: DIABETES MELLITUS

REACTIONS (4)
  - Weight decreased [Recovered/Resolved]
  - Infectious mononucleosis [Recovered/Resolved]
  - Cough [Recovered/Resolved]
  - Mycobacterium tuberculosis complex test positive [Recovered/Resolved]
